FAERS Safety Report 12725139 (Version 1)
Quarter: 2016Q3

REPORT INFORMATION
  Report Type: Spontaneous
  Country: US (occurrence: US)
  Receive Date: 20160907
  Receipt Date: 20160907
  Transmission Date: 20161109
  Serious: Yes (Hospitalization, Other)
  Sender: FDA-Public Use
  Company Number: None

PATIENT
  Age: 53 Year
  Sex: Female
  Weight: 76.5 kg

DRUGS (1)
  1. CETIRIZINE [Suspect]
     Active Substance: CETIRIZINE HYDROCHLORIDE
     Indication: SINUS CONGESTION
     Route: 048
     Dates: start: 20160901, end: 20160903

REACTIONS (12)
  - Nasal congestion [None]
  - Cough [None]
  - Loss of consciousness [None]
  - Dyspnoea [None]
  - Heart rate increased [None]
  - Sinus congestion [None]
  - Dry mouth [None]
  - Syncope [None]
  - Rhinitis [None]
  - Pharyngitis [None]
  - Fatigue [None]
  - Blood pressure increased [None]

NARRATIVE: CASE EVENT DATE: 20160903
